FAERS Safety Report 5944320-8 (Version None)
Quarter: 2008Q4

REPORT INFORMATION
  Report Type: 
  Country: None (occurrence: None)
  Receive Date: 20081105
  Receipt Date: 20081021
  Transmission Date: 20090506
  Serious: Yes (Hospitalization)
  Sender: FDA-Public Use
  Company Number: SPV1-2008-02271

PATIENT

DRUGS (1)
  1. LIALDA [Suspect]
     Dosage: ORAL
     Route: 048
     Dates: start: 20080101

REACTIONS (1)
  - MYOCARDITIS [None]
